FAERS Safety Report 4410562-6 (Version None)
Quarter: 2004Q3

REPORT INFORMATION
  Report Type: 
  Country: None (occurrence: None)
  Receive Date: 20040729
  Receipt Date: 20040429
  Transmission Date: 20050211
  Serious: Yes (Hospitalization)
  Sender: FDA-Public Use
  Company Number: US-BRISTOL-MYERS SQUIBB COMPANY-12574497

PATIENT
  Age: 58 Year
  Sex: Female
  Weight: 54 kg

DRUGS (5)
  1. CETUXIMAB [Suspect]
     Indication: NON-SMALL CELL LUNG CANCER
     Route: 042
     Dates: start: 20040311, end: 20040311
  2. ASPIRIN [Suspect]
     Indication: CARDIAC FLUTTER
     Dosage: 3-4 DOSES FOR HEART FLUTTERING
     Dates: start: 20040422
  3. AMBIEN [Concomitant]
     Dates: start: 20040408
  4. LEVAQUIN [Concomitant]
     Dates: start: 20040421
  5. VICODIN [Concomitant]
     Dates: start: 20030828

REACTIONS (6)
  - ANAEMIA [None]
  - EPISTAXIS [None]
  - HEART RATE INCREASED [None]
  - PLATELET COUNT INCREASED [None]
  - RESPIRATORY RATE INCREASED [None]
  - WHITE BLOOD CELL COUNT INCREASED [None]
